FAERS Safety Report 4325190-0 (Version None)
Quarter: 2004Q1

REPORT INFORMATION
  Report Type: 
  Country: None (occurrence: None)
  Receive Date: 20040324
  Receipt Date: 20040308
  Transmission Date: 20041129
  Serious: No
  Sender: FDA-Public Use
  Company Number: WAES 0403TUR00003

PATIENT
  Age: 58 Year
  Sex: Male

DRUGS (3)
  1. ZETIA [Suspect]
     Indication: HYPERCHOLESTEROLAEMIA
     Dosage: 10 MG/DAILY
     Dates: start: 20040115, end: 20040229
  2. TAB PLACEBO (UNSPECIFIED) [Suspect]
     Indication: HYPERCHOLESTEROLAEMIA
     Dates: start: 20031222, end: 20040114
  3. ZOCOR [Suspect]
     Indication: HYPERCHOLESTEROLAEMIA
     Dates: start: 20031222, end: 20040229

REACTIONS (1)
  - ATRIAL FIBRILLATION [None]
